FAERS Safety Report 10011953 (Version 1)
Quarter: 2014Q1

REPORT INFORMATION
  Report Type: Report from Study
  Country: US (occurrence: US)
  Receive Date: 20140314
  Receipt Date: 20140314
  Transmission Date: 20141002
  Serious: Yes (Life-Threatening)
  Sender: FDA-Public Use
  Company Number: PHHY2014US030661

PATIENT
  Age: 48 Year
  Sex: Male

DRUGS (2)
  1. EVEROLIMUS [Suspect]
     Indication: BREAST CANCER
     Route: 048
  2. EVEROLIMUS [Suspect]
     Dosage: UNK
     Route: 048

REACTIONS (1)
  - Febrile neutropenia [Recovered/Resolved]
